FAERS Safety Report 4899517-5 (Version None)
Quarter: 2006Q1

REPORT INFORMATION
  Report Type: 
  Country: None (occurrence: None)
  Receive Date: 20060118
  Receipt Date: 20050504
  Transmission Date: 20060701
  Serious: No
  Sender: FDA-Public Use
  Company Number: 2005000859

PATIENT
  Age: 75 Year
  Sex: Male

DRUGS (4)
  1. TARCEVA [Suspect]
     Indication: NON-SMALL CELL LUNG CANCER
     Dosage: 150 MG (QD), ORAL
     Route: 048
     Dates: start: 20050406
  2. PREDNISONE TAB [Concomitant]
  3. AUGMENTIN '125' [Concomitant]
  4. AVELOX [Concomitant]

REACTIONS (5)
  - ABDOMINAL PAIN [None]
  - DECREASED APPETITE [None]
  - DYSPHONIA [None]
  - GLOSSODYNIA [None]
  - TONGUE DISORDER [None]
